FAERS Safety Report 11131301 (Version 2)
Quarter: 2015Q2

REPORT INFORMATION
  Report Type: Spontaneous
  Country: NO (occurrence: NO)
  Receive Date: 20150522
  Receipt Date: 20150601
  Transmission Date: 20150821
  Serious: Yes (Other)
  Sender: FDA-Public Use
  Company Number: NO-ROCHE-1579137

PATIENT
  Age: 5 Decade
  Sex: Male

DRUGS (11)
  1. VALGANCICLOVIR [Suspect]
     Active Substance: VALGANCICLOVIR
     Indication: CYTOMEGALOVIRUS INFECTION
     Route: 065
  2. GANCICLOVIR. [Concomitant]
     Active Substance: GANCICLOVIR
     Indication: CYTOMEGALOVIRUS INFECTION
     Route: 065
  3. COTRIMOXAZOLE [Suspect]
     Active Substance: SULFAMETHOXAZOLE\TRIMETHOPRIM
     Indication: GLOMERULONEPHRITIS
  4. METHYLPREDNISOLONE. [Suspect]
     Active Substance: METHYLPREDNISOLONE
     Indication: GOODPASTURE^S SYNDROME
     Dosage: HIGH DOSE, ONCE DAILY FOR 3 DAYS
     Route: 042
  5. CEFOTAXIME [Suspect]
     Active Substance: CEFOTAXIME\CEFOTAXIME SODIUM
     Indication: SEPSIS
     Route: 042
  6. VALGANCICLOVIR [Suspect]
     Active Substance: VALGANCICLOVIR
     Indication: GLOMERULONEPHRITIS
  7. CYCLOPHOSPHAMIDE. [Suspect]
     Active Substance: CYCLOPHOSPHAMIDE
     Indication: GLOMERULONEPHRITIS
  8. PREDNISOLONE. [Suspect]
     Active Substance: PREDNISOLONE
     Indication: GOODPASTURE^S SYNDROME
     Route: 048
  9. COTRIMOXAZOLE [Suspect]
     Active Substance: SULFAMETHOXAZOLE\TRIMETHOPRIM
     Indication: ANTIFUNGAL PROPHYLAXIS
     Dosage: 1 TABLET DAILY
     Route: 065
  10. METRONIDAZOLE. [Concomitant]
     Active Substance: METRONIDAZOLE
     Indication: CLOSTRIDIUM COLITIS
     Route: 065
  11. CYCLOPHOSPHAMIDE. [Suspect]
     Active Substance: CYCLOPHOSPHAMIDE
     Indication: GOODPASTURE^S SYNDROME
     Dosage: 50 MG, QD
     Route: 048

REACTIONS (7)
  - Bone marrow failure [Unknown]
  - Peripheral swelling [Recovering/Resolving]
  - Diarrhoea [Recovering/Resolving]
  - Cytomegalovirus infection [Unknown]
  - Neutropenia [Recovering/Resolving]
  - Leukopenia [Recovered/Resolved]
  - Clostridium colitis [Unknown]
